FAERS Safety Report 22392896 (Version 2)
Quarter: 2023Q2

REPORT INFORMATION
  Report Type: Spontaneous
  Country: US (occurrence: US)
  Receive Date: 20230601
  Receipt Date: 20230603
  Transmission Date: 20230721
  Serious: Yes (Life-Threatening, Other)
  Sender: FDA-Public Use
  Company Number: US-SUN PHARMACEUTICAL INDUSTRIES LTD-2023R1-392409

PATIENT
  Age: 16 Year
  Sex: Female
  Weight: 63.7 kg

DRUGS (2)
  1. IBUPROFEN [Suspect]
     Active Substance: IBUPROFEN
     Indication: Product used for unknown indication
     Dosage: 2 GRAM
     Route: 048
  2. NAPROXEN [Suspect]
     Active Substance: NAPROXEN
     Indication: Product used for unknown indication
     Dosage: 41.8 GRAM (656 MG/KG)
     Route: 048

REACTIONS (6)
  - Intentional overdose [Unknown]
  - Hypotension [Recovering/Resolving]
  - Lactic acidosis [Recovering/Resolving]
  - Drug level increased [Unknown]
  - Agitation [Recovering/Resolving]
  - Lethargy [Recovering/Resolving]
